FAERS Safety Report 5246490-6 (Version None)
Quarter: 2007Q1

REPORT INFORMATION
  Report Type: 
  Country: None (occurrence: None)
  Receive Date: 20070226
  Receipt Date: 20070215
  Transmission Date: 20070707
  Serious: Yes (Hospitalization)
  Sender: FDA-Public Use
  Company Number: BR-BRISTOL-MYERS SQUIBB COMPANY-13669775

PATIENT
  Age: 10 Year
  Sex: Male

DRUGS (1)
  1. AMPHOTERICIN B [Suspect]
     Indication: CATHETER RELATED INFECTION
     Route: 042

REACTIONS (3)
  - HYPOKALAEMIA [None]
  - ILEUS PARALYTIC [None]
  - RHABDOMYOLYSIS [None]
